FAERS Safety Report 8433701-9 (Version None)
Quarter: 2012Q2

REPORT INFORMATION
  Report Type: 
  Country: None (occurrence: None)
  Receive Date: 20120613
  Receipt Date: 20120531
  Transmission Date: 20120825
  Serious: Yes (Other)
  Sender: FDA-Public Use
  Company Number: CHPA2012US011889

PATIENT
  Sex: Male

DRUGS (2)
  1. EXCEDRIN (MIGRAINE) [Suspect]
     Indication: MIGRAINE
     Dosage: 2 DF, EVERY 8-10 HOURS PRN
     Route: 048
  2. MULTI-VITAMINS [Concomitant]
     Dosage: UNK

REACTIONS (3)
  - HYPERTENSION [None]
  - OVERDOSE [None]
  - BLOOD CHOLESTEROL ABNORMAL [None]
